FAERS Safety Report 25303739 (Version 1)
Quarter: 2025Q2

REPORT INFORMATION
  Report Type: Report from Study
  Country: US (occurrence: US)
  Receive Date: 20250513
  Receipt Date: 20250513
  Transmission Date: 20250716
  Serious: Yes (Hospitalization, Other)
  Sender: ABBVIE
  Company Number: US-ABBVIE-6271593

PATIENT
  Age: 82 Year
  Sex: Male

DRUGS (2)
  1. IMBRUVICA [Suspect]
     Active Substance: IBRUTINIB
     Indication: Chronic lymphocytic leukaemia
     Route: 048
     Dates: start: 20210301
  2. IMBRUVICA [Suspect]
     Active Substance: IBRUTINIB
     Indication: Chronic lymphocytic leukaemia
     Route: 048

REACTIONS (10)
  - Urinary bladder haemorrhage [Unknown]
  - Cystitis noninfective [Unknown]
  - Neoplasm malignant [Recovered/Resolved]
  - Post micturition dribble [Unknown]
  - Haemorrhage [Unknown]
  - Blister [Unknown]
  - Neuropathy peripheral [Unknown]
  - White blood cell count abnormal [Unknown]
  - Platelet count decreased [Unknown]
  - Thrombosis [Unknown]

NARRATIVE: CASE EVENT DATE: 20241201
